FAERS Safety Report 8618546-9 (Version None)
Quarter: 2012Q3

REPORT INFORMATION
  Report Type: 
  Country: None (occurrence: None)
  Receive Date: 20120824
  Receipt Date: 20120821
  Transmission Date: 20120928
  Serious: No
  Sender: FDA-Public Use
  Company Number: US-PFIZER INC-2012206094

PATIENT
  Age: 75 Year
  Sex: Male
  Weight: 86.6 kg

DRUGS (2)
  1. SUTENT [Suspect]
     Dosage: 50 MG (UNKNOWN FREQUENCY)
     Dates: start: 20120101, end: 20120801
  2. SUTENT [Suspect]
     Indication: BONE NEOPLASM MALIGNANT
     Dosage: 50 MG (UNKNOWN FREQUENCY)
     Dates: start: 20120701, end: 20120701

REACTIONS (1)
  - PLATELET COUNT DECREASED [None]
